FAERS Safety Report 7070184-8 (Version None)
Quarter: 2010Q4

REPORT INFORMATION
  Report Type: 
  Country: None (occurrence: None)
  Receive Date: 20101028
  Receipt Date: 20100922
  Transmission Date: 20110411
  Serious: No
  Sender: FDA-Public Use
  Company Number: US-WYE-H17689410

PATIENT
  Sex: Female
  Weight: 70.29 kg

DRUGS (7)
  1. PROTONIX [Suspect]
     Dosage: 40 MG, UNKNOWN FREQUENCY
  2. ACETYLSALICYLIC ACID [Concomitant]
  3. ZOLPIDEM [Concomitant]
  4. ATENOLOL [Concomitant]
  5. EVOXAC [Concomitant]
  6. PLAVIX [Suspect]
     Indication: STENT PLACEMENT
     Dosage: 75 MG , UNSPECIFIED FREQUENCY
     Route: 048
     Dates: start: 20100101
  7. IBANDRONIC ACID [Concomitant]

REACTIONS (1)
  - ABDOMINAL PAIN [None]
